FAERS Safety Report 11237307 (Version 2)
Quarter: 2015Q3

REPORT INFORMATION
  Report Type: Spontaneous
  Country: US (occurrence: US)
  Receive Date: 20150703
  Receipt Date: 20150720
  Transmission Date: 20151125
  Serious: Yes (Hospitalization)
  Sender: FDA-Public Use
  Company Number: US-ACCORD-031804

PATIENT
  Age: 24 Year
  Sex: Female

DRUGS (2)
  1. LEVETIRACETAM. [Suspect]
     Active Substance: LEVETIRACETAM
     Indication: SEIZURE
     Dosage: STARTED WITH 250 MG TWICE A DAY (BID), INCREASED TO 500 MG BID, THEN INCREASED TO 1000 MG BID.
  2. CARBAMAZEPINE. [Concomitant]
     Active Substance: CARBAMAZEPINE
     Indication: SEIZURE

REACTIONS (3)
  - Ventricular tachycardia [Recovered/Resolved]
  - Pneumonia [Recovered/Resolved]
  - Diabetes insipidus [Recovered/Resolved]
